FAERS Safety Report 14732399 (Version 1)
Quarter: 2018Q2

REPORT INFORMATION
  Report Type: Spontaneous
  Country: TR (occurrence: TR)
  Receive Date: 20180409
  Receipt Date: 20180409
  Transmission Date: 20180711
  Serious: Yes (Other)
  Sender: FDA-Public Use
  Company Number: TR-AMGEN-TURSP2018044866

PATIENT
  Age: 8 Month
  Sex: Male

DRUGS (2)
  1. FILGRASTIM [Suspect]
     Active Substance: FILGRASTIM
     Indication: AGRANULOCYTOSIS
     Dosage: 5 MUG/KG, QD (USED FOR 6 WEEKS)
     Route: 058
  2. DIGITALIS [Concomitant]
     Active Substance: DIGITALIS
     Dosage: UNK

REACTIONS (2)
  - Off label use [Unknown]
  - Neutropenia [Recovered/Resolved]
